FAERS Safety Report 10374755 (Version 1)
Quarter: 2014Q3

REPORT INFORMATION
  Report Type: Spontaneous
  Country: CA (occurrence: CA)
  Receive Date: 20140811
  Receipt Date: 20140811
  Transmission Date: 20150326
  Serious: Yes (Congenital Anomaly)
  Sender: FDA-Public Use
  Company Number: CA-ROCHE-1447757

PATIENT
  Sex: Male
  Weight: 4.11 kg

DRUGS (2)
  1. HERCEPTIN [Suspect]
     Active Substance: TRASTUZUMAB
     Dosage: ADJUVANT
     Route: 042
     Dates: start: 20120131, end: 20121019
  2. HERCEPTIN [Suspect]
     Active Substance: TRASTUZUMAB
     Indication: PRODUCT USED FOR UNKNOWN INDICATION
     Dosage: NEOADJUVANT TAXOL
     Route: 042
     Dates: start: 20111006, end: 20111222

REACTIONS (3)
  - Foetal arrhythmia [Unknown]
  - Macrosomia [Unknown]
  - Foetal exposure during pregnancy [Unknown]
